FAERS Safety Report 7990123-2 (Version None)
Quarter: 2011Q4

REPORT INFORMATION
  Report Type: 
  Country: None (occurrence: None)
  Receive Date: 20111219
  Receipt Date: 20110927
  Transmission Date: 20120403
  Serious: No
  Sender: FDA-Public Use
  Company Number: US-ASTRAZENECA-2011SE35305

PATIENT
  Age: 60 Year
  Sex: Female
  Weight: 170 kg

DRUGS (3)
  1. CRESTOR [Suspect]
     Route: 048
  2. CELABREX [Concomitant]
  3. CRESTOR [Suspect]
     Route: 048

REACTIONS (5)
  - LABORATORY TEST ABNORMAL [None]
  - FATIGUE [None]
  - PAIN [None]
  - WEIGHT INCREASED [None]
  - DRUG DOSE OMISSION [None]
